FAERS Safety Report 4404286-9 (Version None)
Quarter: 2004Q3

REPORT INFORMATION
  Report Type: 
  Country: None (occurrence: None)
  Receive Date: 20040713
  Receipt Date: 20040706
  Transmission Date: 20050211
  Serious: Yes (Other)
  Sender: FDA-Public Use
  Company Number: 200410518BCA

PATIENT

DRUGS (34)
  1. PLASBUMIN-5 [Suspect]
     Dosage: 1500-500ML, TOTAL DAILY, INTRAVENOUS
     Route: 042
     Dates: start: 19900201
  2. PLASBUMIN-5 [Suspect]
     Dosage: 1500-500ML, TOTAL DAILY, INTRAVENOUS
     Route: 042
     Dates: start: 19900201
  3. PLASBUMIN-5 [Suspect]
  4. RBC (TYPE O+) (RED BLOOD CELLS) [Suspect]
     Dosage: ONCE, INTRAVENOUS
     Route: 042
     Dates: start: 19900226
  5. RBC (TYPE O+) (RED BLOOD CELLS) [Suspect]
     Dosage: ONCE, INTRAVENOUS
     Route: 042
     Dates: start: 19900226
  6. RBC (TYPE O+) (RED BLOOD CELLS) [Suspect]
     Dosage: ONCE, INTRAVENOUS
     Route: 042
     Dates: start: 19900226
  7. RBC (TYPE O+) (RED BLOOD CELLS) [Suspect]
     Dosage: ONCE, INTRAVENOUS
     Route: 042
     Dates: start: 19900226
  8. RBC (TYPE O+) (RED BLOOD CELLS) [Suspect]
     Dosage: ONCE, INTRAVENOUS
     Route: 042
     Dates: start: 19900226
  9. RBC (TYPE O+) (RED BLOOD CELLS) [Suspect]
     Dosage: ONCE, INTRAVENOUS
     Route: 042
     Dates: start: 19900226
  10. RBC (TYPE O+) (RED BLOOD CELLS) [Suspect]
     Dosage: ONCE, INTRAVENOUS
     Route: 042
     Dates: start: 19900228
  11. RBC (TYPE O+) (RED BLOOD CELLS) [Suspect]
  12. RBC (TYPE O+) (RED BLOOD CELLS) [Suspect]
  13. RBC (TYPE O+) (RED BLOOD CELLS) [Suspect]
  14. RBC (TYPE O+) (RED BLOOD CELLS) [Suspect]
  15. RBC (TYPE O+) (RED BLOOD CELLS) [Suspect]
  16. RBC (TYPE O+) (RED BLOOD CELLS) [Suspect]
  17. AFH (TYPE O) (BLOOD AND RELATED PRODUCTS) [Suspect]
     Dosage: ONCE INTRAVENOUS
     Route: 042
     Dates: start: 19900226
  18. AFH (TYPE O) (BLOOD AND RELATED PRODUCTS) [Suspect]
     Dosage: ONCE INTRAVENOUS
     Route: 042
     Dates: start: 19900226
  19. AFH (TYPE O) (BLOOD AND RELATED PRODUCTS) [Suspect]
     Dosage: ONCE INTRAVENOUS
     Route: 042
     Dates: start: 19900226
  20. AFH (TYPE O) (BLOOD AND RELATED PRODUCTS) [Suspect]
     Dosage: ONCE INTRAVENOUS
     Route: 042
     Dates: start: 19900226
  21. AFH (TYPE O) (BLOOD AND RELATED PRODUCTS) [Suspect]
  22. AFH (TYPE O) (BLOOD AND RELATED PRODUCTS) [Suspect]
  23. AFH (TYPE O) (BLOOD AND RELATED PRODUCTS) [Suspect]
  24. PLATELETS (PLATELETS, HUMAN BLOOD) [Suspect]
     Dosage: ONCE, INTRAVENOUS
     Route: 042
     Dates: start: 19900226
  25. PLATELETS (PLATELETS, HUMAN BLOOD) [Suspect]
     Dosage: ONCE, INTRAVENOUS
     Route: 042
     Dates: start: 19900226
  26. PLATELETS (PLATELETS, HUMAN BLOOD) [Suspect]
     Dosage: ONCE, INTRAVENOUS
     Route: 042
     Dates: start: 19900226
  27. PLATELETS (PLATELETS, HUMAN BLOOD) [Suspect]
     Dosage: ONCE, INTRAVENOUS
     Route: 042
     Dates: start: 19900226
  28. PLATELETS (PLATELETS, HUMAN BLOOD) [Suspect]
     Dosage: ONCE, INTRAVENOUS
     Route: 042
     Dates: start: 19900226
  29. PLATELETS (PLATELETS, HUMAN BLOOD) [Suspect]
     Dosage: ONCE, INTRAVENOUS
     Route: 042
     Dates: start: 19900226
  30. PLATELETS (PLATELETS, HUMAN BLOOD) [Suspect]
  31. PLATELETS (PLATELETS, HUMAN BLOOD) [Suspect]
  32. PLATELETS (PLATELETS, HUMAN BLOOD) [Suspect]
  33. PLATELETS (PLATELETS, HUMAN BLOOD) [Suspect]
  34. PLATELETS (PLATELETS, HUMAN BLOOD) [Suspect]

REACTIONS (2)
  - HEPATITIS C ANTIBODY POSITIVE [None]
  - INDIRECT INFECTION TRANSMISSION [None]
